FAERS Safety Report 6618113-2 (Version None)
Quarter: 2010Q1

REPORT INFORMATION
  Report Type: 
  Country: None (occurrence: None)
  Receive Date: 20100308
  Receipt Date: 20100224
  Transmission Date: 20100710
  Serious: Yes (Death, Hospitalization)
  Sender: FDA-Public Use
  Company Number: FI-ROCHE-685502

PATIENT
  Sex: Male

DRUGS (9)
  1. AVASTIN [Suspect]
     Indication: GLIOBLASTOMA MULTIFORME
     Dosage: FREQUENCY: ONE INTRAVENOUS INFUSION TWO WEEKS APART.
     Route: 042
     Dates: start: 20091231, end: 20100114
  2. DEXAMETHASONE [Concomitant]
     Indication: PROPHYLAXIS
     Dosage: FREQUENCY: 2.5+2+2+2+2.5 TABLETS PER DAY
     Route: 048
     Dates: start: 20070418, end: 20100123
  3. KEPPRA [Concomitant]
     Indication: CONVULSION PROPHYLAXIS
     Dosage: FREQUENCY: 2+3 TABLETS PER DAY
     Route: 048
     Dates: start: 20090318, end: 20100123
  4. TRILEPTAL [Concomitant]
     Indication: CONVULSION PROPHYLAXIS
     Route: 048
     Dates: start: 20080407, end: 20100123
  5. MICARDIS [Concomitant]
     Dosage: INDICATION: CARDIAC DRUG
     Route: 048
  6. TENOX (TEMAZEPAM) [Concomitant]
     Dosage: INDICATION: SLEEP MEDICINE
     Route: 048
  7. LACTULOSE 1A PHARMA [Concomitant]
     Indication: CONSTIPATION
     Dosage: DOSE: 667 MG/ML
     Route: 048
  8. ZANTAC [Concomitant]
     Dosage: INDICATION: PREVENTIVE TREATMENT OF ULCERS
     Route: 048
  9. PANADOL [Concomitant]
     Dosage: FREQUENCY: WHEN NEEDED, INDICATION: FOR PAIN WHEN NEEDED
     Route: 048

REACTIONS (5)
  - DEPRESSED LEVEL OF CONSCIOUSNESS [None]
  - ENURESIS [None]
  - MOBILITY DECREASED [None]
  - PNEUMONIA [None]
  - STRIDOR [None]
